FAERS Safety Report 22051662 (Version 1)
Quarter: 2023Q1

REPORT INFORMATION
  Report Type: Spontaneous
  Country: US (occurrence: US)
  Receive Date: 20230302
  Receipt Date: 20230302
  Transmission Date: 20230418
  Serious: No
  Sender: FDA-Public Use
  Company Number: US-BIOGEN-2022BI01167011

PATIENT
  Age: 45 Year
  Sex: Female

DRUGS (8)
  1. TECFIDERA [Suspect]
     Active Substance: DIMETHYL FUMARATE
     Indication: Multiple sclerosis
     Dosage: TAKE 120 MG BY MOUTH TWICE DAILY FOR 7 DAYS
     Route: 050
     Dates: start: 20221019
  2. TECFIDERA [Suspect]
     Active Substance: DIMETHYL FUMARATE
     Dosage: THEN 240 MG TWICE DAILY THEREAFTER
     Route: 050
     Dates: start: 202210
  3. ALBUTEROL [Concomitant]
     Active Substance: ALBUTEROL
     Dosage: AER HFA
     Route: 050
  4. BENADRYL [Concomitant]
     Active Substance: DIPHENHYDRAMINE HYDROCHLORIDE
     Route: 050
  5. GLATIRAMER [Concomitant]
     Active Substance: GLATIRAMER
     Dosage: 40 MG/ML (12=12)?GLATIRAMER WHISPERJECT
     Route: 050
  6. PREDNISONE [Concomitant]
     Active Substance: PREDNISONE
     Route: 050
  7. VITAMIN C [Concomitant]
     Active Substance: ASCORBIC ACID
     Route: 050
  8. XYZAL [Concomitant]
     Active Substance: LEVOCETIRIZINE DIHYDROCHLORIDE
     Route: 050

REACTIONS (2)
  - Gastrointestinal disorder [Not Recovered/Not Resolved]
  - Multiple sclerosis relapse [Recovered/Resolved]

NARRATIVE: CASE EVENT DATE: 20221001
